FAERS Safety Report 12282023 (Version 1)
Quarter: 2016Q2

REPORT INFORMATION
  Report Type: Spontaneous
  Country: US (occurrence: US)
  Receive Date: 20160419
  Receipt Date: 20160419
  Transmission Date: 20160815
  Serious: Yes (Other)
  Sender: FDA-Public Use
  Company Number: US-BIOGEN-2016BI00224912

PATIENT

DRUGS (1)
  1. TECFIDERA [Suspect]
     Active Substance: DIMETHYL FUMARATE
     Indication: PRODUCT USED FOR UNKNOWN INDICATION
     Route: 065

REACTIONS (7)
  - Hypoaesthesia [Unknown]
  - Rash erythematous [Unknown]
  - Pruritus [Unknown]
  - White blood cell count decreased [Unknown]
  - Urinary tract infection [Unknown]
  - Cognitive disorder [Unknown]
  - Fatigue [Unknown]
